FAERS Safety Report 11291110 (Version 3)
Quarter: 2015Q3

REPORT INFORMATION
  Report Type: Spontaneous
  Country: US (occurrence: None)
  Receive Date: 20150720
  Receipt Date: 20150817
  Transmission Date: 20151125
  Serious: Yes (Hospitalization, Other)
  Sender: FDA-Public Use
  Company Number: 1713747-2015-999210

PATIENT
  Age: 58 Year
  Sex: Female

DRUGS (2)
  1. LIBERTY CYCLER AND CASSETTE [Concomitant]
  2. DELFLEX [Suspect]
     Active Substance: CALCIUM CHLORIDE\DEXTROSE MONOHYDRATE\MAGNESIUM CHLORIDE\SODIUM CHLORIDE\SODIUM LACTATE
     Indication: CHRONIC KIDNEY DISEASE
     Dosage: DAILY, PD
     Route: 048

REACTIONS (3)
  - Peritonitis [None]
  - Staphylococcus test positive [None]
  - Inadequate aseptic technique in use of product [None]

NARRATIVE: CASE EVENT DATE: 20150703
